FAERS Safety Report 9723049 (Version 1)
Quarter: 2013Q4

REPORT INFORMATION
  Report Type: Spontaneous
  Country: US (occurrence: None)
  Receive Date: 20131127
  Receipt Date: 20131127
  Transmission Date: 20140711
  Serious: Yes (Disabling)
  Sender: FDA-Public Use
  Company Number: None

PATIENT
  Age: 33 Year
  Sex: Female
  Weight: 58.97 kg

DRUGS (1)
  1. CIPROFLOXACIN HYDROCHLORIDE [Suspect]
     Indication: URINARY TRACT INFECTION
     Route: 048
     Dates: start: 20130420, end: 20130422

REACTIONS (10)
  - Nausea [None]
  - Asthenia [None]
  - Arthralgia [None]
  - Headache [None]
  - Tendon rupture [None]
  - Tendon rupture [None]
  - Carpal tunnel syndrome [None]
  - Neuralgia [None]
  - Impaired healing [None]
  - Gait disturbance [None]
